FAERS Safety Report 7009338-5 (Version None)
Quarter: 2010Q3

REPORT INFORMATION
  Report Type: 
  Country: None (occurrence: None)
  Receive Date: 20100923
  Receipt Date: 20100915
  Transmission Date: 20110219
  Serious: Yes (Hospitalization, Other)
  Sender: FDA-Public Use
  Company Number: US-KINGPHARMUSA00001-K201001151

PATIENT
  Age: 84 Year
  Sex: Female
  Weight: 54.422 kg

DRUGS (2)
  1. CYTOMEL [Suspect]
     Indication: HYPOTHYROIDISM
     Dosage: 15 MCG, QD
     Route: 048
     Dates: start: 19950101
  2. ACIPHEX [Concomitant]
     Indication: GASTROOESOPHAGEAL REFLUX DISEASE
     Dosage: UNK

REACTIONS (6)
  - ANAEMIA [None]
  - BLOOD THYROID STIMULATING HORMONE INCREASED [None]
  - DRUG INEFFECTIVE [None]
  - FATIGUE [None]
  - HAEMORRHAGE [None]
  - ROAD TRAFFIC ACCIDENT [None]
